FAERS Safety Report 24315069 (Version 6)
Quarter: 2025Q3

REPORT INFORMATION
  Report Type: Spontaneous
  Country: US (occurrence: US)
  Receive Date: 20240913
  Receipt Date: 20250710
  Transmission Date: 20251020
  Serious: Yes (Death, Other)
  Sender: LEO PHARM
  Company Number: US-LEO Pharma-372996

PATIENT
  Age: 73 Year
  Sex: Female

DRUGS (1)
  1. ADBRY [Suspect]
     Active Substance: TRALOKINUMAB-LDRM
     Indication: Dermatitis atopic
     Dates: start: 202405, end: 202408

REACTIONS (2)
  - Drug ineffective [Unknown]
  - Cutaneous T-cell lymphoma [Fatal]

NARRATIVE: CASE EVENT DATE: 20240910
